FAERS Safety Report 5971602-6 (Version None)
Quarter: 2008Q4

REPORT INFORMATION
  Report Type: 
  Country: None (occurrence: None)
  Receive Date: 20081201
  Receipt Date: 20081124
  Transmission Date: 20090506
  Serious: No
  Sender: FDA-Public Use
  Company Number: US-JNJFOC-20081106024

PATIENT
  Sex: Female
  Weight: 55.79 kg

DRUGS (11)
  1. DURAGESIC-100 [Suspect]
     Indication: NECK PAIN
     Route: 062
     Dates: start: 20030101
  2. DEPO-PROVERA [Concomitant]
     Indication: CONTRACEPTION
     Route: 050
  3. ACTIQ [Concomitant]
     Indication: PAIN
     Route: 048
  4. SKELAXIN [Concomitant]
     Indication: MUSCLE SPASMS
     Route: 048
  5. ULTRACET [Concomitant]
     Indication: PAIN
     Route: 048
  6. LYRICA [Concomitant]
     Indication: PAIN
     Route: 048
  7. FEXOFENADINE [Concomitant]
     Indication: MULTIPLE ALLERGIES
     Route: 048
  8. DICLOFENAC SODIUM [Concomitant]
     Indication: PAIN
     Route: 061
  9. PRILOSEC [Concomitant]
     Indication: GASTRIC DISORDER
     Route: 048
  10. CALTRATE [Concomitant]
     Route: 048
  11. CENTRUM [Concomitant]
     Indication: GENERAL PHYSICAL CONDITION
     Route: 048

REACTIONS (3)
  - COLD SWEAT [None]
  - INAPPROPRIATE SCHEDULE OF DRUG ADMINISTRATION [None]
  - WRONG TECHNIQUE IN DRUG USAGE PROCESS [None]
